FAERS Safety Report 7296679-X (Version None)
Quarter: 2011Q1

REPORT INFORMATION
  Report Type: 
  Country: None (occurrence: None)
  Receive Date: 20110216
  Receipt Date: 20110124
  Transmission Date: 20110831
  Serious: No
  Sender: FDA-Public Use
  Company Number: US-B.I. PHARMACEUTICALS,INC./RIDGEFIELD-2011-BP-02529BP

PATIENT
  Sex: Female

DRUGS (5)
  1. PRADAXA [Suspect]
     Indication: ATRIAL FIBRILLATION
     Dosage: 300 MG
     Route: 048
     Dates: start: 20110118
  2. FLAGYL [Suspect]
     Indication: DIVERTICULITIS
     Dates: start: 20110101
  3. SYNTHROID [Concomitant]
     Indication: HYPOTHYROIDISM
  4. MULTAQ [Concomitant]
     Indication: ATRIAL FIBRILLATION
  5. CIPRO [Suspect]
     Indication: DIVERTICULITIS
     Dates: start: 20110101

REACTIONS (1)
  - TONGUE COATED [None]
